FAERS Safety Report 9234997 (Version 1)
Quarter: 2013Q2

REPORT INFORMATION
  Report Type: Spontaneous
  Country: US (occurrence: US)
  Receive Date: 20130416
  Receipt Date: 20130416
  Transmission Date: 20140414
  Serious: No
  Sender: FDA-Public Use
  Company Number: US-BAYER-2013-047896

PATIENT
  Age: 77 Year
  Sex: Male
  Weight: 70.75 kg

DRUGS (7)
  1. ALEVE CAPLET [Suspect]
     Indication: ARTHRITIS
     Dosage: 1 DF, BID
     Route: 048
     Dates: start: 201301
  2. ALEVE CAPLET [Suspect]
     Indication: ARTHRITIS
     Dosage: 1 DF, QD
     Route: 048
  3. BAYER ASPIRIN REGIMEN ADULT LOW STRENGTH [Concomitant]
  4. SIMVASTATIN [Concomitant]
  5. GABAPENTIN [Concomitant]
  6. GLUCOSAMINE [Concomitant]
  7. ATENOLOL [Concomitant]

REACTIONS (2)
  - Constipation [Not Recovered/Not Resolved]
  - Incorrect drug administration duration [None]
